FAERS Safety Report 8371617 (Version 2)
Quarter: 2013Q1

REPORT INFORMATION
  Report Type: Report from Study
  Country: US (occurrence: US)
  Receive Date: 20120129
  Receipt Date: 20130129
  Transmission Date: 20140127
  Serious: Yes (Other)
  Sender: FDA-Public Use
  Company Number: US-ABBOTT-11P-163-0867102-00

PATIENT
  Sex: Male
  Weight: 93.07 kg

DRUGS (4)
  1. HUMIRA 40 MG/0.8 ML PEN [Suspect]
     Indication: PSORIASIS
     Route: 058
     Dates: start: 20110503
  2. LISINOPRIL [Concomitant]
     Indication: BLOOD PRESSURE
     Dates: start: 2011
  3. ZYRTEC [Concomitant]
     Indication: HYPERSENSITIVITY
     Dates: start: 2009
  4. PRILOSEC [Concomitant]
     Indication: HIATUS HERNIA
     Dates: start: 2008

REACTIONS (5)
  - Abdominal pain [Unknown]
  - Nausea [Unknown]
  - Impaired healing [Unknown]
  - Incision site oedema [Unknown]
  - Incision site erythema [Unknown]
